FAERS Safety Report 6071788-1 (Version None)
Quarter: 2009Q1

REPORT INFORMATION
  Report Type: 
  Country: None (occurrence: None)
  Receive Date: 20090210
  Receipt Date: 20090130
  Transmission Date: 20090719
  Serious: Yes (Hospitalization, Other)
  Sender: FDA-Public Use
  Company Number: PHHY2009BR03607

PATIENT
  Age: 86 Year
  Sex: Female
  Weight: 48 kg

DRUGS (8)
  1. EXELON [Suspect]
     Route: 048
  2. EXELON [Suspect]
     Dosage: 9MG/5CM2
     Route: 062
  3. EXELON [Suspect]
     Dosage: 18 MG/10CM2
     Route: 062
     Dates: end: 20090130
  4. PURAN [Concomitant]
     Indication: HYPERTHYROIDISM
     Dosage: 75 MG, QD
     Route: 048
  5. VASOPRIL [Concomitant]
     Indication: HYPERTENSION
     Dosage: 10 MG, QD
     Route: 048
  6. LIPITOR [Concomitant]
     Indication: BLOOD CHOLESTEROL INCREASED
     Dosage: 10 MG, QHS
     Route: 048
  7. MUVINLAX [Concomitant]
     Indication: CONSTIPATION
     Dosage: UNK
     Route: 048
  8. MOTILIUM [Concomitant]
     Indication: CONSTIPATION
     Dosage: 10 MG, BID
     Route: 048

REACTIONS (4)
  - HEADACHE [None]
  - MALAISE [None]
  - NAUSEA [None]
  - VOMITING [None]
